FAERS Safety Report 15133399 (Version 1)
Quarter: 2018Q3

REPORT INFORMATION
  Report Type: Spontaneous
  Country: US (occurrence: US)
  Receive Date: 20180712
  Receipt Date: 20180712
  Transmission Date: 20181010
  Serious: No
  Sender: FDA-Public Use
  Company Number: US-PFIZER INC-2018275572

PATIENT
  Sex: Female

DRUGS (4)
  1. LYRICA [Suspect]
     Active Substance: PREGABALIN
     Dosage: 50 MG, UNK (DIVIDED THE 100MG DOSE IN HALF AND WAS TAKING)
  2. LYRICA [Suspect]
     Active Substance: PREGABALIN
     Dosage: 100 MG, UNK
  3. LYRICA [Suspect]
     Active Substance: PREGABALIN
     Indication: ABDOMINAL PAIN UPPER
     Dosage: 50 MG, UNK
  4. LYRICA [Suspect]
     Active Substance: PREGABALIN
     Dosage: UNK UNK, 3X/DAY  (HALF OF THE POWDER IN EACH HALF CAPSULE AND TAKING THEM EVERY 8 HOURS)

REACTIONS (6)
  - Intentional product misuse [Unknown]
  - Pre-existing condition improved [Unknown]
  - Product use in unapproved indication [Unknown]
  - Malaise [Unknown]
  - Therapeutic response unexpected [Unknown]
  - Abdominal discomfort [Unknown]
